FAERS Safety Report 5471457-2 (Version None)
Quarter: 2007Q3

REPORT INFORMATION
  Report Type: 
  Country: None (occurrence: None)
  Receive Date: 20070928
  Receipt Date: 20061027
  Transmission Date: 20080115
  Serious: No
  Sender: FDA-Public Use
  Company Number: US-BRISTOL-MYERS SQUIBB COMPANY-13558259

PATIENT
  Age: 35 Year
  Sex: Female

DRUGS (1)
  1. DEFINITY [Suspect]
     Indication: ECHOCARDIOGRAM
     Dosage: 3CC IN NORMAL SALINE VIA IV PUSH
     Route: 042
     Dates: start: 20061026

REACTIONS (2)
  - FLUSHING [None]
  - HEADACHE [None]
